FAERS Safety Report 24405208 (Version 1)
Quarter: 2024Q4

REPORT INFORMATION
  Report Type: Spontaneous
  Country: CN (occurrence: CN)
  Receive Date: 20241007
  Receipt Date: 20241007
  Transmission Date: 20250115
  Serious: No
  Sender: ROCHE
  Company Number: CN-ROCHE-3572428

PATIENT
  Age: 62 Year
  Sex: Female

DRUGS (15)
  1. GAZYVA [Suspect]
     Active Substance: OBINUTUZUMAB
     Indication: Mantle cell lymphoma
     Dosage: G-CHOP, D0
     Route: 042
     Dates: start: 20220803
  2. GAZYVA [Suspect]
     Active Substance: OBINUTUZUMAB
     Dosage: BG, D1
     Route: 042
     Dates: start: 20220830
  3. GAZYVA [Suspect]
     Active Substance: OBINUTUZUMAB
     Dosage: BG, D1
     Route: 042
     Dates: start: 20220927
  4. GAZYVA [Suspect]
     Active Substance: OBINUTUZUMAB
     Dosage: BG,
     Route: 042
     Dates: start: 20221027
  5. GAZYVA [Suspect]
     Active Substance: OBINUTUZUMAB
     Dosage: BG, D1
     Route: 042
     Dates: start: 20221124
  6. GAZYVA [Suspect]
     Active Substance: OBINUTUZUMAB
     Dosage: D1
     Route: 042
     Dates: start: 20230128
  7. GAZYVA [Suspect]
     Active Substance: OBINUTUZUMAB
     Route: 042
     Dates: start: 20230505
  8. IFOSFAMIDE [Concomitant]
     Active Substance: IFOSFAMIDE
     Indication: Mantle cell lymphoma
     Dosage: G-CHOP, D1
     Dates: start: 20220803
  9. DOXORUBICIN [Concomitant]
     Active Substance: DOXORUBICIN
     Indication: Mantle cell lymphoma
     Dosage: G-CHOP, D1
     Dates: start: 20220803
  10. VINORELBINE [Concomitant]
     Active Substance: VINORELBINE TARTRATE
     Indication: Mantle cell lymphoma
     Dosage: G-CHOP, D1
     Dates: start: 20220803
  11. PREDNISONE [Concomitant]
     Active Substance: PREDNISONE
     Indication: Mantle cell lymphoma
     Dosage: G-CHOP, D1-5
     Dates: start: 20220803
  12. BENDAMUSTINE [Concomitant]
     Active Substance: BENDAMUSTINE
     Dosage: BG, D1-2
     Dates: start: 20220830
  13. BENDAMUSTINE [Concomitant]
     Active Substance: BENDAMUSTINE
     Dosage: BG, D1-2
     Dates: start: 20220927
  14. BENDAMUSTINE [Concomitant]
     Active Substance: BENDAMUSTINE
     Dosage: BG, D1-2
     Dates: start: 20221027
  15. BENDAMUSTINE [Concomitant]
     Active Substance: BENDAMUSTINE
     Dosage: BG, D1-2
     Dates: start: 20221124

REACTIONS (2)
  - Off label use [Unknown]
  - No adverse event [Unknown]
